FAERS Safety Report 12493929 (Version 2)
Quarter: 2016Q2

REPORT INFORMATION
  Report Type: Report from Study
  Country: NL (occurrence: NL)
  Receive Date: 20160623
  Receipt Date: 20160627
  Transmission Date: 20160815
  Serious: Yes (Other)
  Sender: FDA-Public Use
  Company Number: NL-ABBVIE-16P-114-1656806-00

PATIENT
  Sex: Male
  Weight: 73 kg

DRUGS (1)
  1. DUODOPA [Suspect]
     Active Substance: CARBIDOPA\LEVODOPA
     Indication: PARKINSON^S DISEASE
     Dosage: MORNING 13.0, CONTINUOUS 3.4, EXTRA 3.3
     Route: 050
     Dates: start: 20150217

REACTIONS (3)
  - Micturition disorder [Not Recovered/Not Resolved]
  - Cystitis noninfective [Not Recovered/Not Resolved]
  - Urinary tract infection [Not Recovered/Not Resolved]
